FAERS Safety Report 22368852 (Version 2)
Quarter: 2023Q2

REPORT INFORMATION
  Report Type: Spontaneous
  Country: AU (occurrence: AU)
  Receive Date: 20230525
  Receipt Date: 20230530
  Transmission Date: 20230722
  Serious: Yes (Other)
  Sender: FDA-Public Use
  Company Number: AU-002147023-NVSC2023AU115724

PATIENT
  Sex: Female

DRUGS (4)
  1. AZATHIOPRINE [Suspect]
     Active Substance: AZATHIOPRINE
     Indication: Crohn^s disease
     Dosage: MAX DOSE: 50 MG
     Route: 065
     Dates: start: 200801, end: 200801
  2. TACROLIMUS [Suspect]
     Active Substance: TACROLIMUS
     Indication: Crohn^s disease
     Dosage: UNK (ENEMA)
     Route: 065
     Dates: start: 20221222
  3. USTEKINUMAB [Suspect]
     Active Substance: USTEKINUMAB
     Indication: Crohn^s disease
     Dosage: 90 MG, Q4W
     Route: 065
     Dates: start: 20221228
  4. VEDOLIZUMAB [Suspect]
     Active Substance: VEDOLIZUMAB
     Indication: Crohn^s disease
     Dosage: 108 MG (1 FORTNIGHTLY)
     Route: 065
     Dates: start: 20221222

REACTIONS (3)
  - Anal abscess [Unknown]
  - Anal fistula [Unknown]
  - Product use in unapproved indication [Unknown]
